FAERS Safety Report 7750669-9 (Version None)
Quarter: 2011Q3

REPORT INFORMATION
  Report Type: 
  Country: None (occurrence: None)
  Receive Date: 20110914
  Receipt Date: 20110908
  Transmission Date: 20111222
  Serious: Yes (Life-Threatening, Hospitalization)
  Sender: FDA-Public Use
  Company Number: MX-GLAXOSMITHKLINE-B0747228A

PATIENT
  Age: 75 Year
  Sex: Female

DRUGS (1)
  1. PROPAFENONE HCL [Suspect]
     Indication: ARRHYTHMIA
     Dosage: 600MG PER DAY
     Route: 048

REACTIONS (2)
  - VENTRICULAR ARRHYTHMIA [None]
  - ATRIAL FIBRILLATION [None]
